FAERS Safety Report 9199095 (Version 2)
Quarter: 2013Q2

REPORT INFORMATION
  Report Type: Spontaneous
  Country: US (occurrence: None)
  Receive Date: 20130325
  Receipt Date: 20130409
  Transmission Date: 20140414
  Serious: No
  Sender: FDA-Public Use
  Company Number: 2013US-004603

PATIENT
  Age: 58 Year
  Sex: Female
  Weight: 102.5 kg

DRUGS (19)
  1. OMONTYS (PEGINESATIDE) SOLUTION FOR INJECTION [Suspect]
     Indication: NEPHROGENIC ANAEMIA
     Route: 042
     Dates: start: 20130208, end: 20130208
  2. XANAX (ALPRAZOLAM) [Concomitant]
  3. AMITRIPTYLINE (AMITRIPTYLINE) [Concomitant]
  4. PHOSLO (CALCIUM ACETATE) [Concomitant]
  5. COREG (CARVEDILOL) [Concomitant]
  6. SENSIPAR (CINACALCET HYDROCHLORIDE) [Concomitant]
  7. GABAPENTIN (GABAPENTIN) [Concomitant]
  8. MUCINEX (GUAIFENSESIN) [Concomitant]
  9. NOVOLOG (INSULIN ASPART) [Concomitant]
  10. LANTUS (INSULIN GLARGINE) [Concomitant]
  11. LEVAQUIN (LEVOFLOXACIN) [Concomitant]
  12. XALATAN (LATANOPROST) [Concomitant]
  13. PRILOSEC [Concomitant]
  14. RENVELA (SEVELAMER CARBONATE) [Concomitant]
  15. ZOCOR (SIMVASTATIN) [Concomitant]
  16. COUMADIN (WARFARIN SODIUM) [Concomitant]
  17. ZEMPLAR (PARICALCITOL) [Concomitant]
  18. HEPARIN (HEPARIN) [Concomitant]
  19. EPOETIN ALFA [Concomitant]

REACTIONS (9)
  - Inflammation [None]
  - Urticaria [None]
  - Pruritus [None]
  - Product quality issue [None]
  - Heart rate increased [None]
  - Blood pressure increased [None]
  - Heart rate decreased [None]
  - Blood pressure decreased [None]
  - Dizziness [None]
